FAERS Safety Report 14016167 (Version 2)
Quarter: 2017Q4

REPORT INFORMATION
  Report Type: Spontaneous
  Country: JP (occurrence: JP)
  Receive Date: 20170927
  Receipt Date: 20171016
  Transmission Date: 20180321
  Serious: Yes (Death, Hospitalization, Other)
  Sender: FDA-Public Use
  Company Number: JP-AMGEN-JPNSP2017146080

PATIENT
  Age: 70 Year
  Sex: Male

DRUGS (5)
  1. KYPROLIS [Suspect]
     Active Substance: CARFILZOMIB
     Dosage: 27 MG/M2, UNK
     Route: 041
     Dates: start: 201705, end: 20170612
  2. DEXAMETHASONE. [Suspect]
     Active Substance: DEXAMETHASONE
     Indication: PLASMA CELL MYELOMA
     Dosage: UNK
     Route: 065
     Dates: start: 20170510, end: 2017
  3. REVLIMID [Suspect]
     Active Substance: LENALIDOMIDE
     Dosage: UNK
     Route: 048
     Dates: end: 20170728
  4. KYPROLIS [Suspect]
     Active Substance: CARFILZOMIB
     Indication: PLASMA CELL MYELOMA
     Dosage: 20 MG/M2, UNK
     Route: 041
     Dates: start: 20170510, end: 201705
  5. REVLIMID [Suspect]
     Active Substance: LENALIDOMIDE
     Indication: PLASMA CELL MYELOMA
     Dosage: UNK
     Route: 048
     Dates: start: 20170510

REACTIONS (5)
  - Guillain-Barre syndrome [Recovered/Resolved]
  - Nausea [Unknown]
  - Brain stem haemorrhage [Fatal]
  - Oedema [Unknown]
  - Diarrhoea [Unknown]

NARRATIVE: CASE EVENT DATE: 2017
